FAERS Safety Report 23114463 (Version 2)
Quarter: 2023Q4

REPORT INFORMATION
  Report Type: Spontaneous
  Country: BE (occurrence: BE)
  Receive Date: 20231027
  Receipt Date: 20231202
  Transmission Date: 20240110
  Serious: Yes (Hospitalization, Other)
  Sender: FDA-Public Use
  Company Number: BE-Accord-386425

PATIENT
  Age: 71 Year
  Sex: Male

DRUGS (4)
  1. OXALIPLATIN [Suspect]
     Active Substance: OXALIPLATIN
     Indication: Malignant neoplasm of ampulla of Vater
     Dosage: TWELVE DOSES
  2. FLUOROURACIL [Concomitant]
     Active Substance: FLUOROURACIL
     Indication: Malignant neoplasm of ampulla of Vater
  3. IRINOTECAN [Concomitant]
     Active Substance: IRINOTECAN
     Indication: Malignant neoplasm of ampulla of Vater
  4. LEUCOVORIN [Concomitant]
     Active Substance: LEUCOVORIN\LEUCOVORIN CALCIUM
     Indication: Malignant neoplasm of ampulla of Vater

REACTIONS (3)
  - Peritoneal disorder [Recovered/Resolved]
  - Granuloma [Recovered/Resolved]
  - Off label use [Unknown]
